FAERS Safety Report 22733947 (Version 2)
Quarter: 2024Q1

REPORT INFORMATION
  Report Type: Spontaneous
  Country: US (occurrence: US)
  Receive Date: 20230721
  Receipt Date: 20240330
  Transmission Date: 20240410
  Serious: Yes (Life-Threatening, Hospitalization, Other)
  Sender: FDA-Public Use
  Company Number: US-MLMSERVICE-20230703-4387251-1

PATIENT
  Age: 62 Year
  Sex: Male

DRUGS (4)
  1. DOXYCYCLINE [Suspect]
     Active Substance: DOXYCYCLINE
     Indication: Pleurodesis
     Dosage: 500 MILLIGRAM
     Route: 065
  2. BUPIVACAINE [Concomitant]
     Active Substance: BUPIVACAINE
     Indication: Pleurodesis
     Dosage: 20 MILLILITER
     Route: 065
  3. SODIUM CHLORIDE [Concomitant]
     Active Substance: SODIUM CHLORIDE
     Indication: Pleurodesis
     Dosage: 150 MILLILITER
     Route: 065
  4. OXYGEN [Concomitant]
     Active Substance: OXYGEN
     Indication: Product used for unknown indication
     Dosage: HIGH-FLOW
     Route: 045

REACTIONS (2)
  - Pulmonary toxicity [Recovered/Resolved]
  - Acute respiratory failure [Recovered/Resolved]
